FAERS Safety Report 8297965-7 (Version None)
Quarter: 2012Q2

REPORT INFORMATION
  Report Type: 
  Country: None (occurrence: None)
  Receive Date: 20120419
  Receipt Date: 20120413
  Transmission Date: 20120825
  Serious: Yes (Hospitalization, Other)
  Sender: FDA-Public Use
  Company Number: FR-PFIZER INC-2012092062

PATIENT
  Age: 81 Year
  Sex: Female

DRUGS (10)
  1. DIGOXIN [Concomitant]
     Dosage: UNK
  2. SOTALOL HCL [Concomitant]
     Dosage: UNK
  3. CLONAZEPAM [Concomitant]
     Dosage: UNK
  4. ALDALIX [Concomitant]
     Dosage: UNK
  5. LASIX [Suspect]
     Indication: ARRHYTHMIA SUPRAVENTRICULAR
     Dosage: UNK
  6. FENOFIBRATE [Concomitant]
     Dosage: UNK
  7. OXAZEPAM [Suspect]
     Indication: DEPRESSION
     Dosage: UNK
  8. ATENOLOL [Suspect]
     Indication: ARRHYTHMIA SUPRAVENTRICULAR
     Dosage: UNK
  9. ZOLOFT [Suspect]
     Indication: DEPRESSION
     Dosage: UNK
  10. COUMADIN [Concomitant]
     Indication: ATRIAL FIBRILLATION
     Dosage: UNK

REACTIONS (3)
  - FALL [None]
  - SUBDURAL HAEMATOMA [None]
  - CLUMSINESS [None]
